FAERS Safety Report 16104299 (Version 6)
Quarter: 2019Q2

REPORT INFORMATION
  Report Type: Spontaneous
  Country: US (occurrence: US)
  Receive Date: 20190322
  Receipt Date: 20190509
  Transmission Date: 20190711
  Serious: Yes (Other)
  Sender: FDA-Public Use
  Company Number: US-GLAXOSMITHKLINE-US2019GSK050813

PATIENT
  Sex: Male

DRUGS (4)
  1. PREVACID [Suspect]
     Active Substance: LANSOPRAZOLE
     Indication: PRODUCT USED FOR UNKNOWN INDICATION
     Dosage: 30 MG, QD
     Route: 048
  2. LANSOPRAZOLE. [Suspect]
     Active Substance: LANSOPRAZOLE
     Indication: PRODUCT USED FOR UNKNOWN INDICATION
     Dosage: 30 MG, QD
     Route: 048
  3. PANTOPRAZOLE [Suspect]
     Active Substance: PANTOPRAZOLE
     Indication: PRODUCT USED FOR UNKNOWN INDICATION
     Dosage: 40 MG, QD
     Route: 048
  4. OMEPRAZOLE. [Suspect]
     Active Substance: OMEPRAZOLE
     Indication: PRODUCT USED FOR UNKNOWN INDICATION
     Dosage: 20 MG, QD
     Route: 048

REACTIONS (20)
  - Nephrogenic anaemia [Unknown]
  - Renal disorder [Unknown]
  - Hydronephrosis [Unknown]
  - Acute kidney injury [Unknown]
  - Pollakiuria [Unknown]
  - Haematuria [Unknown]
  - Dysuria [Unknown]
  - Proteinuria [Unknown]
  - Polyuria [Unknown]
  - Diabetic nephropathy [Unknown]
  - Blood creatinine increased [Unknown]
  - Nephropathy [Unknown]
  - Nocturia [Unknown]
  - Bladder mass [Unknown]
  - Renal failure [Unknown]
  - Nephrolithiasis [Unknown]
  - Chronic kidney disease [Unknown]
  - Renal impairment [Unknown]
  - Incontinence [Unknown]
  - Calculus bladder [Unknown]
